FAERS Safety Report 7304376-7 (Version None)
Quarter: 2011Q1

REPORT INFORMATION
  Report Type: 
  Country: None (occurrence: None)
  Receive Date: 20110221
  Receipt Date: 20110215
  Transmission Date: 20110831
  Serious: Yes (Death)
  Sender: FDA-Public Use
  Company Number: US-ASTRAZENECA-2011SE08704

PATIENT
  Age: 35 Year
  Sex: Female

DRUGS (3)
  1. SEROQUEL [Suspect]
     Route: 048
     Dates: end: 20110101
  2. TRAZODONE HCL [Concomitant]
     Indication: ANTIDEPRESSANT THERAPY
  3. ZOLOFT [Concomitant]
     Indication: ANTIDEPRESSANT THERAPY

REACTIONS (1)
  - COMPLETED SUICIDE [None]
